FAERS Safety Report 8623940-6 (Version None)
Quarter: 2012Q3

REPORT INFORMATION
  Report Type: 
  Country: None (occurrence: None)
  Receive Date: 20120827
  Receipt Date: 20120822
  Transmission Date: 20120928
  Serious: Yes (Other)
  Sender: FDA-Public Use
  Company Number: PHHY2012AU072897

PATIENT
  Sex: Female

DRUGS (6)
  1. ACETAMINOPHEN [Concomitant]
  2. METFORMIN HCL [Concomitant]
  3. ZOLEDRONOC ACID [Suspect]
     Route: 042
     Dates: start: 20110101
  4. ASPIRIN [Concomitant]
  5. CRESTOR [Concomitant]
  6. MICARDIS [Concomitant]

REACTIONS (3)
  - ROAD TRAFFIC ACCIDENT [None]
  - CLAVICLE FRACTURE [None]
  - INJURY [None]
